FAERS Safety Report 12742867 (Version 2)
Quarter: 2016Q4

REPORT INFORMATION
  Report Type: Report from Study
  Country: US (occurrence: US)
  Receive Date: 20160914
  Receipt Date: 20161118
  Transmission Date: 20170207
  Serious: Yes (Hospitalization)
  Sender: FDA-Public Use
  Company Number: US-SA-2016SA159107

PATIENT
  Age: 45 Year
  Sex: Female

DRUGS (1)
  1. LUMIZYME [Suspect]
     Active Substance: ALGLUCOSIDASE ALFA
     Indication: GLYCOGEN STORAGE DISEASE TYPE II
     Dosage: FREQUENCY Q2
     Route: 041
     Dates: start: 20100913, end: 20161110

REACTIONS (3)
  - Gallbladder disorder [Recovering/Resolving]
  - Urticaria [Unknown]
  - Abdominal pain [Unknown]

NARRATIVE: CASE EVENT DATE: 2016
